FAERS Safety Report 13842256 (Version 1)
Quarter: 2017Q3

REPORT INFORMATION
  Report Type: Spontaneous
  Country: US (occurrence: US)
  Receive Date: 20170807
  Receipt Date: 20170807
  Transmission Date: 20171127
  Serious: No
  Sender: FDA-Public Use
  Company Number: US-BRISTOL-MYERS SQUIBB COMPANY-BMS-2017-070133

PATIENT
  Sex: Female
  Weight: 86.63 kg

DRUGS (1)
  1. YERVOY [Suspect]
     Active Substance: IPILIMUMAB
     Indication: PRODUCT USED FOR UNKNOWN INDICATION
     Dosage: 865 MG, UNK
     Route: 042
     Dates: start: 20170524

REACTIONS (2)
  - Fatigue [Unknown]
  - Asthenia [Unknown]
